FAERS Safety Report 4534244-5 (Version None)
Quarter: 2004Q4

REPORT INFORMATION
  Report Type: 
  Country: None (occurrence: None)
  Receive Date: 20041214
  Receipt Date: 20040826
  Transmission Date: 20050328
  Serious: No
  Sender: FDA-Public Use
  Company Number: 2004232163US

PATIENT
  Sex: Female

DRUGS (4)
  1. BEXTRA [Suspect]
     Indication: EPICONDYLITIS
     Dosage: 20 MG QD ORAL
     Route: 048
     Dates: start: 20040601
  2. TOPAMAX [Concomitant]
  3. LEVETIRACETAM [Concomitant]
  4. VISTARIL [Concomitant]

REACTIONS (6)
  - ABNORMAL DREAMS [None]
  - EATING DISORDER [None]
  - LOCAL SWELLING [None]
  - PAIN [None]
  - SWELLING [None]
  - WEIGHT INCREASED [None]
